FAERS Safety Report 12142779 (Version 2)
Quarter: 2016Q1

REPORT INFORMATION
  Report Type: Spontaneous
  Country: FR (occurrence: FR)
  Receive Date: 20160303
  Receipt Date: 20160329
  Transmission Date: 20160526
  Serious: Yes (Hospitalization, Other)
  Sender: FDA-Public Use
  Company Number: FR-TEVA-638596ISR

PATIENT
  Age: 22 Year
  Sex: Male

DRUGS (5)
  1. PAROXETINE [Concomitant]
     Active Substance: PAROXETINE\PAROXETINE HYDROCHLORIDE
     Indication: SCHIZOPHRENIA
     Dosage: 20 MG MORNINGS
     Route: 065
  2. HYDROXYZINE [Suspect]
     Active Substance: HYDROXYZINE\HYDROXYZINE HYDROCHLORIDE
     Indication: INTENTIONAL OVERDOSE
     Dosage: 1.5 G
     Route: 065
  3. HYDROXYZINE [Suspect]
     Active Substance: HYDROXYZINE\HYDROXYZINE HYDROCHLORIDE
     Indication: SCHIZOPHRENIA
     Dosage: 25 MG IN EVENING
     Route: 065
  4. ARIPIPRAZOLE. [Concomitant]
     Active Substance: ARIPIPRAZOLE
     Indication: SCHIZOPHRENIA
     Dosage: 15 MG MORNINGS
     Route: 065
  5. OXAZEPAM. [Concomitant]
     Active Substance: OXAZEPAM
     Indication: SCHIZOPHRENIA
     Dosage: 10 MG AS NEEDED
     Route: 065

REACTIONS (4)
  - Intentional overdose [Recovering/Resolving]
  - Hypoxic-ischaemic encephalopathy [Recovering/Resolving]
  - Central nervous system lesion [Recovering/Resolving]
  - Locked-in syndrome [Recovering/Resolving]
